FAERS Safety Report 11649554 (Version 2)
Quarter: 2015Q4

REPORT INFORMATION
  Report Type: Spontaneous
  Country: US (occurrence: US)
  Receive Date: 20151021
  Receipt Date: 20151211
  Transmission Date: 20160304
  Serious: Yes (Other)
  Sender: FDA-Public Use
  Company Number: US-BAYER-2015-447578

PATIENT
  Age: 6 Year
  Sex: Male
  Weight: 23.58 kg

DRUGS (4)
  1. MIRALAX [Suspect]
     Active Substance: POLYETHYLENE GLYCOL 3350
     Indication: CYSTIC FIBROSIS
     Dosage: UP TO 3.5 DOSE DURING THE DAY
  2. MIRALAX [Suspect]
     Active Substance: POLYETHYLENE GLYCOL 3350
     Indication: CYSTIC FIBROSIS
     Dosage: 1-2 DOSE
     Route: 048
     Dates: start: 2010
  3. MIRALAX [Suspect]
     Active Substance: POLYETHYLENE GLYCOL 3350
     Indication: CYSTIC FIBROSIS
     Dosage: 1 TO 1.5 DOSES IN THE MORNING
     Route: 048
     Dates: start: 2010
  4. MIRALAX [Suspect]
     Active Substance: POLYETHYLENE GLYCOL 3350
     Indication: CYSTIC FIBROSIS
     Dosage: UP TO 2 DOSES IN THE AFTERNOON
     Route: 048
     Dates: start: 2010

REACTIONS (4)
  - Off label use [None]
  - Product use issue [None]
  - Abdominal pain upper [Recovered/Resolved]
  - Drug dependence [None]

NARRATIVE: CASE EVENT DATE: 2010
